FAERS Safety Report 16330120 (Version 2)
Quarter: 2019Q2

REPORT INFORMATION
  Report Type: Spontaneous
  Country: DE (occurrence: DE)
  Receive Date: 20190520
  Receipt Date: 20190528
  Transmission Date: 20190711
  Serious: Yes (Life-Threatening, Hospitalization, Other)
  Sender: FDA-Public Use
  Company Number: DE-GLAXOSMITHKLINE-DE2019GSK087237

PATIENT
  Age: 64 Year
  Sex: Female
  Weight: 80 kg

DRUGS (1)
  1. NUCALA [Suspect]
     Active Substance: MEPOLIZUMAB
     Indication: ASTHMA
     Dosage: UNK
     Dates: start: 201704, end: 201903

REACTIONS (2)
  - Anti factor VIII antibody test [Recovered/Resolved]
  - Acquired haemophilia [Recovered/Resolved]

NARRATIVE: CASE EVENT DATE: 201904
